FAERS Safety Report 23482595 (Version 1)
Quarter: 2024Q1

REPORT INFORMATION
  Report Type: Report from Study
  Country: US (occurrence: US)
  Receive Date: 20240205
  Receipt Date: 20240205
  Transmission Date: 20240409
  Serious: No
  Sender: FDA-Public Use
  Company Number: US-ASTELLAS-2023US038866

PATIENT
  Age: 48 Year
  Sex: Female

DRUGS (1)
  1. FEZOLINETANT [Suspect]
     Active Substance: FEZOLINETANT
     Indication: Product used for unknown indication
     Route: 065
     Dates: start: 20231031, end: 20240130

REACTIONS (2)
  - Liver function test increased [Unknown]
  - Liver disorder [Unknown]

NARRATIVE: CASE EVENT DATE: 20231227
